FAERS Safety Report 6100056-4 (Version None)
Quarter: 2009Q1

REPORT INFORMATION
  Report Type: 
  Country: None (occurrence: None)
  Receive Date: 20090303
  Receipt Date: 20090219
  Transmission Date: 20090719
  Serious: Yes (Other)
  Sender: FDA-Public Use
  Company Number: B0561672A

PATIENT

DRUGS (6)
  1. BUSULPHAN [Suspect]
     Indication: NON-HODGKIN'S LYMPHOMA
     Route: 048
  2. CYCLOPHOSPHAMIDE [Suspect]
     Indication: NON-HODGKIN'S LYMPHOMA
     Dosage: 120MGK PER DAY
     Route: 042
  3. FILGASTRIM [Concomitant]
     Dosage: 5MCK PER DAY
     Route: 042
  4. HYDRATION [Concomitant]
     Indication: PROPHYLAXIS
  5. MESNA [Concomitant]
     Indication: PROPHYLAXIS
  6. PHENYTOIN [Concomitant]
     Indication: CONVULSION PROPHYLAXIS

REACTIONS (4)
  - HAEMORRHAGE [None]
  - HYPOTENSION [None]
  - MYOCARDIAL INFARCTION [None]
  - VENOOCCLUSIVE DISEASE [None]
